FAERS Safety Report 5729259-5 (Version None)
Quarter: 2008Q2

REPORT INFORMATION
  Report Type: 
  Country: None (occurrence: None)
  Receive Date: 20080506
  Receipt Date: 20080424
  Transmission Date: 20081010
  Serious: Yes (Other)
  Sender: FDA-Public Use
  Company Number: US-PFIZER INC-2008013416

PATIENT
  Sex: Male
  Weight: 95.3 kg

DRUGS (14)
  1. CHANTIX [Suspect]
     Indication: SMOKING CESSATION THERAPY
     Route: 048
     Dates: start: 20070314, end: 20080201
  2. ZOCOR [Concomitant]
  3. NEPRO [Concomitant]
  4. PREVACID [Concomitant]
  5. ANTIDEPRESSANTS [Concomitant]
  6. METFORMIN/PIOGLITAZONE [Concomitant]
  7. AMARYL [Concomitant]
     Dosage: DAILY DOSE:2MG
  8. ELAVIL [Concomitant]
  9. ENALAPRIL [Concomitant]
     Dosage: DAILY DOSE:5MG
  10. HUMULIN 70/30 [Concomitant]
  11. MEPERGAN [Concomitant]
  12. ACETYLSALICYLIC ACID SRT [Concomitant]
  13. PLAVIX [Concomitant]
  14. XANAX [Concomitant]

REACTIONS (3)
  - DISSOCIATIVE DISORDER [None]
  - FEELING ABNORMAL [None]
  - SPEECH DISORDER [None]
